FAERS Safety Report 25643064 (Version 1)
Quarter: 2025Q3

REPORT INFORMATION
  Report Type: Spontaneous
  Country: EU (occurrence: EU)
  Receive Date: 20250805
  Receipt Date: 20250805
  Transmission Date: 20251020
  Serious: Yes (Other)
  Sender: CELLTRION
  Company Number: EU-ABBVIE-6279817

PATIENT

DRUGS (14)
  1. ADALIMUMAB [Suspect]
     Active Substance: ADALIMUMAB
     Indication: Colitis ulcerative
     Route: 058
  2. ADALIMUMAB [Suspect]
     Active Substance: ADALIMUMAB
     Route: 058
     Dates: start: 201905
  3. PANTOPRAZOLE SODIUM [Concomitant]
     Active Substance: PANTOPRAZOLE SODIUM
     Indication: Product used for unknown indication
  4. BUDESONIDE [Concomitant]
     Active Substance: BUDESONIDE
     Indication: Product used for unknown indication
  5. ENTYVIO [Concomitant]
     Active Substance: VEDOLIZUMAB
     Indication: Product used for unknown indication
     Dosage: 108 MG, Q2WEEKS
     Route: 058
  6. CORTISONE ACETATE [Concomitant]
     Active Substance: CORTISONE ACETATE
     Indication: Product used for unknown indication
  7. CIPROFLOXACIN LACTATE [Concomitant]
     Active Substance: CIPROFLOXACIN LACTATE
     Indication: Product used for unknown indication
  8. METRONIDAZOLE SODIUM [Concomitant]
     Active Substance: METRONIDAZOLE SODIUM
     Indication: Product used for unknown indication
  9. MESALAMINE [Concomitant]
     Active Substance: MESALAMINE
     Indication: Product used for unknown indication
  10. MESALAMINE [Concomitant]
     Active Substance: MESALAMINE
     Route: 048
  11. PREDNISOLONE ACETATE [Concomitant]
     Active Substance: PREDNISOLONE ACETATE
     Indication: Product used for unknown indication
  12. AZATHIOPRINE [Concomitant]
     Active Substance: AZATHIOPRINE
  13. AZATHIOPRINE [Concomitant]
     Active Substance: AZATHIOPRINE
  14. AZATHIOPRINE [Concomitant]
     Active Substance: AZATHIOPRINE

REACTIONS (10)
  - Haematochezia [Unknown]
  - Faeces soft [Unknown]
  - Frequent bowel movements [Unknown]
  - General physical health deterioration [Unknown]
  - Sleep disorder [Unknown]
  - Pyrexia [Unknown]
  - Abdominal pain [Unknown]
  - Live birth [Unknown]
  - Maternal exposure during pregnancy [Unknown]
  - Maternal exposure during breast feeding [Unknown]
